FAERS Safety Report 21451074 (Version 1)
Quarter: 2022Q4

REPORT INFORMATION
  Report Type: Spontaneous
  Country: US (occurrence: None)
  Receive Date: 20221013
  Receipt Date: 20221013
  Transmission Date: 20230112
  Serious: No
  Sender: FDA-Public Use
  Company Number: 2022A343515

PATIENT
  Age: 32 Year
  Sex: Male
  Weight: 79.4 kg

DRUGS (1)
  1. KOSELUGO [Suspect]
     Active Substance: SELUMETINIB
     Indication: Brain neoplasm malignant
     Route: 048
     Dates: start: 20220215

REACTIONS (8)
  - Headache [Unknown]
  - Acne [Unknown]
  - Epistaxis [Unknown]
  - Pain in extremity [Unknown]
  - Back pain [Unknown]
  - Diarrhoea [Unknown]
  - Vision blurred [Unknown]
  - Fatigue [Unknown]

NARRATIVE: CASE EVENT DATE: 20220101
